FAERS Safety Report 7775127-7 (Version None)
Quarter: 2011Q3

REPORT INFORMATION
  Report Type: 
  Country: None (occurrence: None)
  Receive Date: 20110923
  Receipt Date: 20110914
  Transmission Date: 20111222
  Serious: Yes (Hospitalization)
  Sender: FDA-Public Use
  Company Number: US-JNJFOC-20101004305

PATIENT
  Sex: Male
  Weight: 12.5 kg

DRUGS (9)
  1. INFLIXIMAB, RECOMBINANT [Suspect]
     Route: 042
     Dates: start: 20110301
  2. STEROIDS NOS [Concomitant]
     Route: 048
  3. INFLIXIMAB, RECOMBINANT [Suspect]
     Route: 042
     Dates: start: 20101014
  4. INFLIXIMAB, RECOMBINANT [Suspect]
     Route: 042
     Dates: start: 20101122
  5. ACETAMINOPHEN [Concomitant]
  6. PREVACID [Concomitant]
  7. FLAGYL [Concomitant]
  8. INFLIXIMAB, RECOMBINANT [Suspect]
     Indication: CROHN'S DISEASE
     Route: 042
     Dates: start: 20091111
  9. INFLIXIMAB, RECOMBINANT [Suspect]
     Route: 042
     Dates: start: 20100901

REACTIONS (1)
  - CROHN'S DISEASE [None]
